FAERS Safety Report 4883344-9 (Version None)
Quarter: 2006Q1

REPORT INFORMATION
  Report Type: 
  Country: None (occurrence: None)
  Receive Date: 20060118
  Receipt Date: 20060111
  Transmission Date: 20060701
  Serious: Yes (Hospitalization)
  Sender: FDA-Public Use
  Company Number: US-GLAXOSMITHKLINE-B0406407A

PATIENT
  Age: 45 Year
  Sex: Female

DRUGS (2)
  1. BUPROPION HYDROCHLORIDE [Suspect]
     Dosage: 200MG SEE DOSAGE TEXT
     Route: 048
  2. SLEEPING PILLS [Concomitant]
     Route: 065

REACTIONS (7)
  - AGITATION [None]
  - CONVULSION [None]
  - ELECTROCARDIOGRAM QRS COMPLEX PROLONGED [None]
  - HALLUCINATION, VISUAL [None]
  - OVERDOSE [None]
  - PNEUMONIA ASPIRATION [None]
  - VOMITING [None]
